FAERS Safety Report 8118143-8 (Version None)
Quarter: 2012Q1

REPORT INFORMATION
  Report Type: 
  Country: None (occurrence: None)
  Receive Date: 20120207
  Receipt Date: 20120131
  Transmission Date: 20120608
  Serious: Yes (Other)
  Sender: FDA-Public Use
  Company Number: US-BRISTOL-MYERS SQUIBB COMPANY-16365637

PATIENT
  Age: 40 Year
  Sex: Female

DRUGS (3)
  1. ABILIFY [Suspect]
     Indication: ANXIETY
     Dosage: REDUCED TO 5MG FOR10DAYS AND THEN REDUCED TO 2MG 4DAYS AT MORNING
     Route: 048
     Dates: start: 20111111, end: 20120111
  2. TRAZODONE HCL [Concomitant]
  3. ABILIFY [Suspect]
     Indication: DEPRESSION
     Dosage: REDUCED TO 5MG FOR10DAYS AND THEN REDUCED TO 2MG 4DAYS AT MORNING
     Route: 048
     Dates: start: 20111111, end: 20120111

REACTIONS (1)
  - WITHDRAWAL SYNDROME [None]
